FAERS Safety Report 6988670-5 (Version None)
Quarter: 2010Q3

REPORT INFORMATION
  Report Type: 
  Country: None (occurrence: None)
  Receive Date: 20100916
  Receipt Date: 20100813
  Transmission Date: 20110219
  Serious: No
  Sender: FDA-Public Use
  Company Number: US-BAYER-201019899BCC

PATIENT
  Age: 68 Year
  Sex: Female
  Weight: 93 kg

DRUGS (6)
  1. ALEVE (CAPLET) [Suspect]
     Indication: ARTHRALGIA
     Dosage: 220 OR 440 MG
     Route: 048
  2. ALEVE (CAPLET) [Suspect]
     Dosage: 220 OR 440 MG
     Route: 048
  3. ALEVE [Suspect]
     Indication: ARTHRALGIA
     Dosage: 220 OR 440 MG
     Route: 048
  4. GLYBURIDE [Concomitant]
     Route: 065
  5. METFORMIN [Concomitant]
     Route: 065
  6. SIMVASTATIN [Concomitant]
     Route: 065

REACTIONS (2)
  - DYSPEPSIA [None]
  - NAUSEA [None]
